FAERS Safety Report 24576483 (Version 2)
Quarter: 2024Q4

REPORT INFORMATION
  Report Type: Spontaneous
  Country: JP (occurrence: JP)
  Receive Date: 20241104
  Receipt Date: 20241120
  Transmission Date: 20250114
  Serious: Yes (Other)
  Sender: PFIZER
  Company Number: JP-ONO-2024JP022289

PATIENT

DRUGS (1)
  1. BRAFTOVI [Suspect]
     Active Substance: ENCORAFENIB
     Indication: Colon cancer
     Dosage: UNK
     Route: 048

REACTIONS (2)
  - Second primary malignancy [Unknown]
  - Bladder cancer [Unknown]
